FAERS Safety Report 25250024 (Version 1)
Quarter: 2025Q2

REPORT INFORMATION
  Report Type: Spontaneous
  Country: US (occurrence: US)
  Receive Date: 20250429
  Receipt Date: 20250429
  Transmission Date: 20250716
  Serious: Yes (Hospitalization)
  Sender: ACCORD
  Company Number: US-Accord-481095

PATIENT
  Age: 18 Year
  Sex: Male

DRUGS (2)
  1. FUROSEMIDE [Suspect]
     Active Substance: FUROSEMIDE
     Indication: Diuretic therapy
  2. ALBUTEROL [Concomitant]
     Active Substance: ALBUTEROL
     Indication: Negative pressure pulmonary oedema

REACTIONS (2)
  - Orthostatic hypotension [Unknown]
  - Presyncope [Unknown]
